FAERS Safety Report 7210782-1 (Version None)
Quarter: 2010Q4

REPORT INFORMATION
  Report Type: 
  Country: None (occurrence: None)
  Receive Date: 20101223
  Receipt Date: 20101221
  Transmission Date: 20110411
  Serious: Yes (Death, Hospitalization)
  Sender: FDA-Public Use
  Company Number: DEU-SPN-2010005

PATIENT
  Age: 15 Year
  Sex: Female

DRUGS (3)
  1. CARBAGLU [Suspect]
     Indication: HYPERAMMONAEMIA
     Dosage: 10 MG/KG EVERY DAY, ORAL
     Route: 048
     Dates: start: 20101214, end: 20101201
  2. PHENYLBUTYRATE [Concomitant]
  3. SODIUM BENZOATE [Concomitant]

REACTIONS (4)
  - ACUTE RESPIRATORY DISTRESS SYNDROME [None]
  - HYPOXIA [None]
  - SEPSIS [None]
  - SOMNOLENCE [None]
